FAERS Safety Report 4954032-5 (Version None)
Quarter: 2006Q1

REPORT INFORMATION
  Report Type: 
  Country: None (occurrence: None)
  Receive Date: 20060321
  Receipt Date: 20060308
  Transmission Date: 20060701
  Serious: Yes (Life-Threatening, Hospitalization)
  Sender: FDA-Public Use
  Company Number: ESWYE462513MAR06

PATIENT
  Age: 64 Year
  Sex: Female

DRUGS (3)
  1. RAPAMUNE [Suspect]
     Indication: PROPHYLAXIS AGAINST TRANSPLANT REJECTION
     Dosage: ORAL
     Route: 048
     Dates: start: 20050408, end: 20050420
  2. TACROLIMUS (TACROLIMUS) [Concomitant]
  3. CORTICOSTEROID NOS (CORTICOSTEROID NOS) [Concomitant]

REACTIONS (11)
  - CEREBRAL ISCHAEMIA [None]
  - CEREBROVASCULAR ACCIDENT [None]
  - COMPLICATIONS OF TRANSPLANTED KIDNEY [None]
  - DEPRESSED LEVEL OF CONSCIOUSNESS [None]
  - DYSARTHRIA [None]
  - HAEMATOCRIT DECREASED [None]
  - HYPERTENSION [None]
  - PERITONEAL DIALYSIS [None]
  - RENAL IMPAIRMENT [None]
  - SOMNOLENCE [None]
  - VOMITING [None]
